FAERS Safety Report 10525504 (Version 1)
Quarter: 2014Q4

REPORT INFORMATION
  Report Type: Spontaneous
  Country: FR (occurrence: FR)
  Receive Date: 20141017
  Receipt Date: 20141017
  Transmission Date: 20150528
  Serious: Yes (Hospitalization)
  Sender: FDA-Public Use
  Company Number: FR-PFIZER INC-2014281007

PATIENT
  Age: 45 Year
  Sex: Female

DRUGS (6)
  1. ADVIL [Suspect]
     Active Substance: IBUPROFEN
     Dosage: 800 MG, DAILY
     Route: 048
     Dates: start: 20140912, end: 20140912
  2. CIFLOX [Suspect]
     Active Substance: CIPROFLOXACIN
     Dosage: 1 G, 3X/DAY
     Route: 048
     Dates: start: 20140912, end: 20140914
  3. CORTANCYL [Concomitant]
     Active Substance: PREDNISONE
     Indication: ARTHRALGIA
     Dosage: UNK
     Dates: start: 201407
  4. ADVIL [Suspect]
     Active Substance: IBUPROFEN
     Dosage: 2800 MG, DAILY
     Route: 048
     Dates: start: 20140913, end: 20140914
  5. METOJECT [Concomitant]
     Active Substance: METHOTREXATE SODIUM
     Indication: ARTHRALGIA
     Dosage: UNK
     Dates: start: 201407
  6. PLAQUENIL [Concomitant]
     Active Substance: HYDROXYCHLOROQUINE SULFATE
     Indication: ARTHRALGIA
     Dosage: UNK
     Dates: start: 201407

REACTIONS (2)
  - Overdose [Recovering/Resolving]
  - Acute kidney injury [Recovering/Resolving]

NARRATIVE: CASE EVENT DATE: 201409
